FAERS Safety Report 23716877 (Version 1)
Quarter: 2024Q2

REPORT INFORMATION
  Report Type: Spontaneous
  Country: US (occurrence: US)
  Receive Date: 20240408
  Receipt Date: 20240408
  Transmission Date: 20240716
  Serious: No
  Sender: FDA-Public Use
  Company Number: US-HALEON-2166024

PATIENT
  Age: 38 Year
  Sex: Female

DRUGS (1)
  1. DEXTROMETHORPHAN HYDROBROMIDE\DOXYLAMINE SUCCINATE [Suspect]
     Active Substance: DEXTROMETHORPHAN HYDROBROMIDE\DOXYLAMINE SUCCINATE
     Indication: Product used for unknown indication
     Dosage: EXPDATE:20250531

REACTIONS (4)
  - Malaise [Not Recovered/Not Resolved]
  - Exposure during pregnancy [Unknown]
  - Recalled product administered [Unknown]
  - Medication error [Unknown]
